FAERS Safety Report 4517058-1 (Version None)
Quarter: 2004Q4

REPORT INFORMATION
  Report Type: 
  Country: None (occurrence: None)
  Receive Date: 20041029
  Receipt Date: 20041001
  Transmission Date: 20050328
  Serious: No
  Sender: FDA-Public Use
  Company Number: 2004-120834-NL

PATIENT
  Age: 53 Year
  Sex: Female
  Weight: 68.2 kg

DRUGS (3)
  1. NUVARING [Suspect]
     Indication: MENSTRUATION IRREGULAR
     Dosage: DF DAILY VAGINAL
     Route: 067
     Dates: start: 20040901, end: 20041001
  2. PREDNISONE [Concomitant]
  3. LOTREL [Concomitant]

REACTIONS (2)
  - HYPOTRICHOSIS [None]
  - NAUSEA [None]
